FAERS Safety Report 6110763-5 (Version None)
Quarter: 2009Q1

REPORT INFORMATION
  Report Type: 
  Country: None (occurrence: None)
  Receive Date: 20090311
  Receipt Date: 20090303
  Transmission Date: 20090719
  Serious: Yes (Hospitalization)
  Sender: FDA-Public Use
  Company Number: CH-CELGENEUS-151-50794-09021163

PATIENT
  Sex: Male

DRUGS (1)
  1. VIDAZA [Suspect]
     Route: 058
     Dates: start: 20090114, end: 20090118

REACTIONS (2)
  - EPISTAXIS [None]
  - THROMBOCYTOPENIA [None]
